FAERS Safety Report 17683912 (Version 1)
Quarter: 2020Q2

REPORT INFORMATION
  Report Type: Spontaneous
  Country: RU (occurrence: RU)
  Receive Date: 20200420
  Receipt Date: 20200420
  Transmission Date: 20200714
  Serious: Yes (Other)
  Sender: FDA-Public Use
  Company Number: RU-SA-2020SA101205

PATIENT
  Age: 60 Year
  Sex: Female
  Weight: 98 kg

DRUGS (4)
  1. ROZUCARD [Concomitant]
     Dosage: 10 MG
     Route: 048
     Dates: start: 20190522
  2. LISINOPRIL. [Concomitant]
     Active Substance: LISINOPRIL
     Dosage: 10 MG
     Route: 048
  3. THIOGAMMA [Concomitant]
     Active Substance: .ALPHA.-LIPOIC ACID
     Dosage: 600 MG
     Route: 048
     Dates: start: 20190522
  4. TOUJEO [Suspect]
     Active Substance: INSULIN GLARGINE
     Dosage: UNK
     Route: 058
     Dates: start: 20200312, end: 20200315

REACTIONS (5)
  - Asthenia [Recovering/Resolving]
  - Dizziness [Recovering/Resolving]
  - Hyperglycaemia [Recovering/Resolving]
  - Headache [Recovering/Resolving]
  - Drug ineffective [Unknown]

NARRATIVE: CASE EVENT DATE: 20200312
